FAERS Safety Report 7917305-X (Version None)
Quarter: 2011Q4

REPORT INFORMATION
  Report Type: 
  Country: None (occurrence: None)
  Receive Date: 20111116
  Receipt Date: 20111108
  Transmission Date: 20120403
  Serious: Yes (Other)
  Sender: FDA-Public Use
  Company Number: PHHY2011DE73923

PATIENT
  Sex: Female
  Weight: 64 kg

DRUGS (3)
  1. LEVOTHYROXINE SODIUM [Concomitant]
     Indication: THYROID DISORDER
     Dosage: 1 DF, QD
     Route: 048
     Dates: start: 19850101
  2. ATACAND [Concomitant]
     Indication: HYPERTENSION
     Dosage: 0.5 DF, QD
     Route: 048
     Dates: start: 19950101
  3. FEMARA [Suspect]
     Indication: BREAST CANCER
     Dosage: 2.5 MG, DAILY
     Dates: start: 20100801, end: 20110801

REACTIONS (9)
  - ARTHRALGIA [None]
  - HEADACHE [None]
  - POST PROCEDURAL COMPLICATION [None]
  - BLOOD CHOLESTEROL INCREASED [None]
  - NODULE [None]
  - JOINT STIFFNESS [None]
  - ALOPECIA [None]
  - BONE PAIN [None]
  - PERIPHERAL VASCULAR DISORDER [None]
